FAERS Safety Report 4790289-1 (Version None)
Quarter: 2005Q4

REPORT INFORMATION
  Report Type: 
  Country: None (occurrence: None)
  Receive Date: 20051005
  Receipt Date: 20051005
  Transmission Date: 20060501
  Serious: Yes (Life-Threatening, Hospitalization)
  Sender: FDA-Public Use
  Company Number: None

PATIENT
  Sex: Male
  Weight: 94 kg

DRUGS (8)
  1. HEPARIN [Suspect]
     Indication: THROMBOSIS PROPHYLAXIS
     Dosage: 5000 UNITS SC BID
     Route: 058
     Dates: start: 20040714, end: 20040720
  2. VALPROIC ACID [Concomitant]
  3. GANCICLOVIR [Concomitant]
  4. LEVETIRACETAM [Concomitant]
  5. LANSOPRAZOLE [Concomitant]
  6. LACTULOSE [Concomitant]
  7. OPTHALMIC OINTMENT [Concomitant]
  8. NYSTATIN [Concomitant]

REACTIONS (1)
  - PLATELET COUNT DECREASED [None]
